FAERS Safety Report 8477081 (Version 2)
Quarter: 2012Q4

REPORT INFORMATION
  Report Type: 
  Country: US (occurrence: US)
  Receive Date: 20120326
  Receipt Date: 20121228
  Transmission Date: 20130627
  Serious: No
  Sender: FDA-Public Use
  Company Number: US-PFIZER INC-2012072766

PATIENT
  Age: 35 Year
  Sex: Female
  Weight: 52 kg

DRUGS (7)
  1. EFFEXOR XR [Suspect]
     Indication: FIBROMYALGIA
     Dosage: 75 mg, 1x/day
     Route: 048
     Dates: start: 200310, end: 20120318
  2. EFFEXOR XR [Suspect]
     Indication: DEPRESSION
     Dosage: UNK
     Dates: start: 201203, end: 2012
  3. EFFEXOR XR [Suspect]
     Indication: PANIC ATTACKS
  4. EFFEXOR XR [Suspect]
     Indication: IRRITABLE BOWEL SYNDROME
  5. VENLAFAXINE HYDROCHLORIDE [Suspect]
     Indication: IRRITABLE BOWEL SYNDROME
     Dosage: 75 mg, 1x/day
     Route: 048
     Dates: start: 201212
  6. CLONAZEPAM [Concomitant]
     Indication: SLEEP PROBLEM
     Dosage: UNK
  7. CLONAZEPAM [Concomitant]
     Indication: RELAXATION

REACTIONS (10)
  - Anaemia [Recovering/Resolving]
  - Withdrawal syndrome [Unknown]
  - Paraesthesia [Recovered/Resolved]
  - Insomnia [Recovered/Resolved]
  - Abdominal pain upper [Not Recovered/Not Resolved]
  - Gastrointestinal pain [Not Recovered/Not Resolved]
  - Malaise [Not Recovered/Not Resolved]
  - Gastric disorder [Not Recovered/Not Resolved]
  - Muscle disorder [Not Recovered/Not Resolved]
  - Off label use [Not Recovered/Not Resolved]
